FAERS Safety Report 5159604-3 (Version None)
Quarter: 2006Q4

REPORT INFORMATION
  Report Type: 
  Country: None (occurrence: None)
  Receive Date: 20061129
  Receipt Date: 20061115
  Transmission Date: 20070319
  Serious: Yes (Hospitalization)
  Sender: FDA-Public Use
  Company Number: US-JNJFOC-20050700598

PATIENT
  Sex: Female
  Weight: 63.5 kg

DRUGS (3)
  1. MOTRIN [Suspect]
     Indication: MALAISE
  2. CELEBREX [Suspect]
     Indication: ARTHRITIS
     Route: 048
  3. GREEN TEA [Concomitant]
     Route: 048

REACTIONS (3)
  - CHROMATURIA [None]
  - DIVERTICULUM [None]
  - JEJUNAL PERFORATION [None]
